FAERS Safety Report 5908856-8 (Version None)
Quarter: 2008Q4

REPORT INFORMATION
  Report Type: 
  Country: None (occurrence: None)
  Receive Date: 20081006
  Receipt Date: 20080926
  Transmission Date: 20090506
  Serious: Yes (Hospitalization)
  Sender: FDA-Public Use
  Company Number: JP-NOVOPROD-279171

PATIENT
  Age: 81 Year
  Sex: Male

DRUGS (2)
  1. NOVORAPID 30 MIX CHU [Suspect]
     Indication: DIABETES MELLITUS
     Dosage: UNK, BID
     Dates: start: 20060601
  2. REGULAR INSULIN NOVO NORDISK [Concomitant]
     Indication: DIABETES MELLITUS
     Route: 058

REACTIONS (5)
  - ANTI-INSULIN ANTIBODY POSITIVE [None]
  - DIABETES MELLITUS INADEQUATE CONTROL [None]
  - HYPERGLYCAEMIA [None]
  - HYPOGLYCAEMIA [None]
  - RENAL IMPAIRMENT [None]
